FAERS Safety Report 9517403 (Version 1)
Quarter: 2013Q3

REPORT INFORMATION
  Report Type: Spontaneous
  Country: DE (occurrence: DE)
  Receive Date: 20130911
  Receipt Date: 20130911
  Transmission Date: 20140515
  Serious: Yes (Death, Life-Threatening)
  Sender: FDA-Public Use
  Company Number: DE-MYLANLABS-2013S1019521

PATIENT
  Sex: Female

DRUGS (4)
  1. PREDNISOLONE [Suspect]
     Indication: CHRONIC OBSTRUCTIVE PULMONARY DISEASE
     Dosage: DAILY DOSE: 2.5 MG MILLIGRAM(S) EVERY DAY
     Route: 048
     Dates: start: 20130803
  2. ARIXTRA [Suspect]
     Indication: PELVIC VENOUS THROMBOSIS
     Dosage: DAILY DOSE: 1 DF DOSAGE FORM EVERY DAY
     Route: 058
     Dates: start: 20130803
  3. SPIRO [Concomitant]
     Indication: CHRONIC OBSTRUCTIVE PULMONARY DISEASE
     Dosage: DAILY DOSE: 0.5 DF DOSAGE FORM EVERY DAY
     Route: 048
     Dates: start: 20130803
  4. FOLSAEURE [Concomitant]
     Indication: PRODUCT USED FOR UNKNOWN INDICATION
     Dosage: DAILY DOSE: 1 DF DOSAGE FORM EVERY DAY
     Route: 048
     Dates: start: 20130803

REACTIONS (2)
  - Injury [Fatal]
  - Subdural haematoma [Fatal]
